FAERS Safety Report 8950806 (Version 1)
Quarter: 2012Q4

REPORT INFORMATION
  Report Type: 
  Country: GB (occurrence: GB)
  Receive Date: 20121206
  Receipt Date: 20121206
  Transmission Date: 20130627
  Serious: Yes (Other)
  Sender: FDA-Public Use
  Company Number: GB-MYLANLABS-2012S1024451

PATIENT
  Age: 74 Year
  Sex: Female

DRUGS (6)
  1. SIMVASTATIN [Suspect]
     Indication: BLOOD CHOLESTEROL INCREASED
     Dates: end: 20121103
  2. ALLOPURINOL [Suspect]
     Indication: GOUT
  3. FUROSEMIDE [Suspect]
     Indication: FLUID RETENTION
  4. GLICLAZIDE [Suspect]
     Indication: PRODUCT USED FOR UNKNOWN INDICATION
  5. LISINOPRIL [Suspect]
     Indication: BLOOD PRESSURE
  6. WARFARIN [Suspect]
     Indication: ANTICOAGULANT THERAPY

REACTIONS (3)
  - Swelling face [Not Recovered/Not Resolved]
  - Malaise [Not Recovered/Not Resolved]
  - Hot flush [Not Recovered/Not Resolved]
